FAERS Safety Report 10598331 (Version 1)
Quarter: 2014Q4

REPORT INFORMATION
  Report Type: Spontaneous
  Country: IT (occurrence: None)
  Receive Date: 20141119
  Receipt Date: 20141119
  Transmission Date: 20150529
  Serious: Yes (Hospitalization)
  Sender: FDA-Public Use
  Company Number: IMP_08153_2014

PATIENT
  Age: 34 Year
  Sex: Female

DRUGS (6)
  1. KETOROLAC [Suspect]
     Active Substance: KETOROLAC\KETOROLAC TROMETHAMINE
     Indication: HEADACHE
     Dosage: DF
  2. BUDESONIDE. [Concomitant]
     Active Substance: BUDESONIDE
  3. CABERGOLINE. [Suspect]
     Active Substance: CABERGOLINE
     Indication: LACTATION DISORDER
  4. BETA-AGONIST [Concomitant]
  5. CORTICOSTEROID NOS [Concomitant]
     Active Substance: CORTICOSTEROID NOS
  6. FORMOTEROL [Concomitant]
     Active Substance: FORMOTEROL

REACTIONS (10)
  - Pulmonary oedema [None]
  - Heart rate increased [None]
  - Cardiac arrest [None]
  - Ventricular fibrillation [None]
  - Kounis syndrome [None]
  - Anaphylactic shock [None]
  - Chest pain [None]
  - Coronary artery dissection [None]
  - Arteriospasm coronary [None]
  - Myocardial necrosis [None]
